FAERS Safety Report 4455571-6 (Version None)
Quarter: 2004Q3

REPORT INFORMATION
  Report Type: 
  Country: None (occurrence: None)
  Receive Date: 20040917
  Receipt Date: 20040826
  Transmission Date: 20050211
  Serious: Yes (Death, Hospitalization, Other)
  Sender: FDA-Public Use
  Company Number: JP_040302854

PATIENT
  Age: 74 Year
  Sex: Male
  Weight: 53 kg

DRUGS (2)
  1. GEMZAR [Suspect]
     Indication: MALIGNANT NEOPLASM OF RENAL PELVIS
     Dosage: 3800 MG OTHER
     Dates: start: 20040122, end: 20040205
  2. TAXOL [Concomitant]

REACTIONS (7)
  - CACHEXIA [None]
  - DRUG ERUPTION [None]
  - DYSPNOEA [None]
  - INTERSTITIAL LUNG DISEASE [None]
  - MALIGNANT NEOPLASM PROGRESSION [None]
  - NEUTROPHIL COUNT DECREASED [None]
  - PNEUMONIA BACTERIAL [None]
